FAERS Safety Report 21625739 (Version 2)
Quarter: 2022Q4

REPORT INFORMATION
  Report Type: Spontaneous
  Country: US (occurrence: None)
  Receive Date: 20221122
  Receipt Date: 20221222
  Transmission Date: 20230113
  Serious: No
  Sender: FDA-Public Use
  Company Number: US-FARMAPROD-202211-2250

PATIENT
  Sex: Female

DRUGS (17)
  1. OXERVATE [Suspect]
     Active Substance: CENEGERMIN-BKBJ
     Indication: Neurotrophic keratopathy
     Route: 047
     Dates: start: 20221019
  2. MOXIFLOXACIN [Concomitant]
     Active Substance: MOXIFLOXACIN
  3. TIMOLOL MALEATE [Concomitant]
     Active Substance: TIMOLOL MALEATE
  4. EYSUVIS [Concomitant]
     Active Substance: LOTEPREDNOL ETABONATE
  5. LATANOPROST [Concomitant]
     Active Substance: LATANOPROST
  6. REFRESH LUQUIGEL [Concomitant]
     Dosage: DROPS LIQUID GEL
  7. ASPIRIN [Concomitant]
     Active Substance: ASPIRIN
  8. CELEBREX [Concomitant]
     Active Substance: CELECOXIB
  9. GABAPENTIN [Concomitant]
     Active Substance: GABAPENTIN
  10. LEXAPRO [Concomitant]
     Active Substance: ESCITALOPRAM OXALATE
  11. SEROQUEL [Concomitant]
     Active Substance: QUETIAPINE FUMARATE
  12. VITAMIN C [Concomitant]
     Active Substance: ASCORBIC ACID
  13. VITAMIN D3 [Concomitant]
     Active Substance: CHOLECALCIFEROL
  14. FISH OIL [Concomitant]
     Active Substance: FISH OIL
  15. MULTIVITAMIN 50 PLUS [Concomitant]
  16. SINGULAIR [Concomitant]
     Active Substance: MONTELUKAST SODIUM
  17. NAMZARIC [Concomitant]
     Active Substance: DONEPEZIL HYDROCHLORIDE\MEMANTINE HYDROCHLORIDE
     Dosage: 21 MILLIGRAMS - 10 MILLIGRAMS, SPRINKLE 24

REACTIONS (1)
  - Eye pain [Recovered/Resolved]
